FAERS Safety Report 19698561 (Version 23)
Quarter: 2024Q1

REPORT INFORMATION
  Report Type: Spontaneous
  Country: US (occurrence: US)
  Receive Date: 20210813
  Receipt Date: 20240313
  Transmission Date: 20240409
  Serious: Yes (Other)
  Sender: FDA-Public Use
  Company Number: US-SUN PHARMACEUTICAL INDUSTRIES LTD-2021R1-303693

PATIENT
  Age: 62 Year
  Sex: Female
  Weight: 90.703 kg

DRUGS (16)
  1. EPOPROSTENOL [Suspect]
     Active Substance: EPOPROSTENOL
     Indication: Pulmonary arterial hypertension
     Dosage: 16.2 NG/KG/MIN CONTINUOUS
     Route: 042
     Dates: start: 20210317
  2. EPOPROSTENOL [Suspect]
     Active Substance: EPOPROSTENOL
     Dosage: 16.2 NG/KG/MIN CONTINUOUS
     Route: 042
     Dates: start: 20210317
  3. EPOPROSTENOL [Suspect]
     Active Substance: EPOPROSTENOL
     Indication: Pulmonary arterial hypertension
     Dosage: UNK, CONTINOUS
     Route: 065
  4. EPOPROSTENOL [Suspect]
     Active Substance: EPOPROSTENOL
     Dosage: 16.2 NG/KG/MIN, CONTINUOUS
     Route: 042
     Dates: start: 20210317
  5. EPOPROSTENOL [Suspect]
     Active Substance: EPOPROSTENOL
     Dosage: 16.2 NG/KG/MIN, CONTINUOUS
     Route: 042
     Dates: start: 20210317
  6. EPOPROSTENOL [Suspect]
     Active Substance: EPOPROSTENOL
     Dosage: 16.2 NG/KG/MIN, CONTINUOUS
     Route: 042
     Dates: start: 20210317
  7. EPOPROSTENOL [Suspect]
     Active Substance: EPOPROSTENOL
     Dosage: 18 NG/KG/MIN, CONTINUOUS
     Route: 042
     Dates: start: 20210317
  8. EPOPROSTENOL [Suspect]
     Active Substance: EPOPROSTENOL
     Dosage: DOSE 20 NG/KG/MIN
     Route: 042
     Dates: start: 20210317
  9. EPOPROSTENOL [Suspect]
     Active Substance: EPOPROSTENOL
     Dosage: 16.3 NG/KG/MIN, CONTINUOUS
     Route: 042
     Dates: start: 20210317
  10. EPOPROSTENOL [Suspect]
     Active Substance: EPOPROSTENOL
     Dosage: 16.2 NG/KG/MIN, CONTINUOUS
     Route: 042
     Dates: start: 20210317
  11. EPOPROSTENOL [Suspect]
     Active Substance: EPOPROSTENOL
     Dosage: 16.2 NG/KG/MIN, CONTINUOUS
     Route: 042
     Dates: start: 20210317
  12. ADCIRCA [Concomitant]
     Active Substance: TADALAFIL
     Indication: Pulmonary arterial hypertension
     Dosage: UNK
     Route: 065
  13. AMBRISENTAN [Concomitant]
     Active Substance: AMBRISENTAN
     Indication: Pulmonary arterial hypertension
     Dosage: UNK
     Route: 065
  14. ELIQUIS [Concomitant]
     Active Substance: APIXABAN
     Indication: Pulmonary arterial hypertension
     Dosage: UNK
     Route: 065
  15. LETAIRIS [Concomitant]
     Active Substance: AMBRISENTAN
     Indication: Product used for unknown indication
     Dosage: UNK
     Route: 065
  16. TADALAFIL [Concomitant]
     Active Substance: TADALAFIL
     Indication: Product used for unknown indication
     Dosage: UNK
     Route: 065

REACTIONS (20)
  - Central venous pressure increased [Unknown]
  - Gingival disorder [Unknown]
  - Device occlusion [Unknown]
  - Fracture [Unknown]
  - Back pain [Unknown]
  - Dysphonia [Unknown]
  - Fall [Unknown]
  - Injection site pruritus [Unknown]
  - Fatigue [Unknown]
  - Onychomycosis [Unknown]
  - Rash [Unknown]
  - Headache [Unknown]
  - Dyspnoea exertional [Unknown]
  - Flushing [Unknown]
  - Incorrect dose administered [Unknown]
  - Fungal infection [Unknown]
  - Depressed mood [Unknown]
  - Somnolence [Unknown]
  - COVID-19 [Unknown]
  - Sinusitis [Unknown]

NARRATIVE: CASE EVENT DATE: 20210321
